FAERS Safety Report 21705798 (Version 1)
Quarter: 2022Q4

REPORT INFORMATION
  Report Type: Report from Study
  Country: US (occurrence: US)
  Receive Date: 20221209
  Receipt Date: 20221209
  Transmission Date: 20230113
  Serious: No
  Sender: FDA-Public Use
  Company Number: US-ABBVIE-4192351

PATIENT
  Age: 56 Year
  Sex: Female

DRUGS (2)
  1. HUMIRA [Suspect]
     Active Substance: ADALIMUMAB
     Indication: Rheumatoid arthritis
     Dosage: CITRATE FREE?THE ONSET DATE FOR ADVERSE EVENT WORSE/INCREASED KNEE PAIN, MIGRAINES, STARTED TO FE...
     Route: 058
  2. COVID-19 VACCINE NOS [Suspect]
     Active Substance: COVID-19 VACCINE NOS
     Indication: COVID-19 immunisation
     Dosage: ONE IN ONCE
     Route: 030

REACTIONS (10)
  - Arthralgia [Unknown]
  - Arthropathy [Unknown]
  - COVID-19 [Unknown]
  - Gait inability [Recovering/Resolving]
  - Migraine [Unknown]
  - Pain [Unknown]
  - Osteoarthritis [Unknown]
  - Therapeutic product effect decreased [Unknown]
  - Disturbance in attention [Unknown]
  - Malaise [Unknown]

NARRATIVE: CASE EVENT DATE: 20221007
